FAERS Safety Report 5412600-0 (Version None)
Quarter: 2007Q3

REPORT INFORMATION
  Report Type: 
  Country: None (occurrence: None)
  Receive Date: 20070809
  Receipt Date: 20070803
  Transmission Date: 20080115
  Serious: Yes (Life-Threatening, Hospitalization, Disabling)
  Sender: FDA-Public Use
  Company Number: 2007-162430-NL

PATIENT
  Age: 26 Year
  Sex: Male

DRUGS (2)
  1. MIRTAZAPINE [Suspect]
     Indication: DEPRESSION
     Dosage: 45 MG
     Dates: end: 20061226
  2. ALCOHOL [Suspect]

REACTIONS (10)
  - ABNORMAL BEHAVIOUR [None]
  - ALCOHOL INTERACTION [None]
  - BRAIN OEDEMA [None]
  - CONFUSIONAL STATE [None]
  - FACIAL BONES FRACTURE [None]
  - FALL [None]
  - HEAD INJURY [None]
  - IRRITABILITY [None]
  - MIDDLE INSOMNIA [None]
  - SKULL FRACTURE [None]
